FAERS Safety Report 9434223 (Version 1)
Quarter: 2013Q3

REPORT INFORMATION
  Report Type: Spontaneous
  Country: US (occurrence: US)
  Receive Date: 20130801
  Receipt Date: 20130801
  Transmission Date: 20140515
  Serious: No
  Sender: FDA-Public Use
  Company Number: US-009507513-1307USA016884

PATIENT
  Sex: 0

DRUGS (1)
  1. LOTRISONE [Suspect]
     Dosage: APPLY TWICE DAILY TO FINGER
     Route: 061
     Dates: start: 20130404, end: 2013

REACTIONS (3)
  - Drug dose omission [Unknown]
  - Product formulation issue [Unknown]
  - No adverse event [Unknown]
